FAERS Safety Report 5389983-3 (Version None)
Quarter: 2007Q3

REPORT INFORMATION
  Report Type: 
  Country: None (occurrence: None)
  Receive Date: 20070716
  Receipt Date: 20070716
  Transmission Date: 20080115
  Serious: Yes (Hospitalization)
  Sender: FDA-Public Use
  Company Number: None

PATIENT
  Age: 79 Year
  Sex: Female

DRUGS (8)
  1. TPA [Suspect]
  2. SYNTHROID [Concomitant]
  3. TOPROL-XL [Concomitant]
  4. LANOXIN [Concomitant]
  5. FOSAMAX [Concomitant]
  6. OS-CAL [Concomitant]
  7. LIPITOR [Concomitant]
  8. ASPIRIN [Concomitant]

REACTIONS (3)
  - BASAL GANGLIA HAEMORRHAGE [None]
  - HEMIPARESIS [None]
  - TACHYCARDIA [None]
